FAERS Safety Report 12866971 (Version 1)
Quarter: 2016Q4

REPORT INFORMATION
  Report Type: Spontaneous
  Country: US (occurrence: US)
  Receive Date: 20161020
  Receipt Date: 20161020
  Transmission Date: 20170207
  Serious: No
  Sender: FDA-Public Use
  Company Number: US-JAZZ-2016-US-014357

PATIENT
  Sex: Male

DRUGS (19)
  1. IBUPROFEN. [Concomitant]
     Active Substance: IBUPROFEN
  2. MODAFINIL. [Concomitant]
     Active Substance: MODAFINIL
  3. PROVIGIL [Concomitant]
     Active Substance: MODAFINIL
  4. CLEOCIN [Concomitant]
     Active Substance: CLINDAMYCIN PHOSPHATE
  5. XYREM [Suspect]
     Active Substance: SODIUM OXYBATE
     Dosage: DOSE ADJUSTMENTS
     Route: 048
     Dates: start: 201506, end: 201603
  6. XYREM [Suspect]
     Active Substance: SODIUM OXYBATE
     Dosage: 2.75 G, BID
     Route: 048
     Dates: start: 201603
  7. MYLANTA [Concomitant]
     Active Substance: ALUMINUM HYDROXIDE\DIMETHICONE\MAGNESIUM HYDROXIDE
  8. B COMPLETE [Concomitant]
  9. CLARITIN [Concomitant]
     Active Substance: LORATADINE
  10. MULTIVITAMINS [Concomitant]
     Active Substance: VITAMINS
  11. FLUOXETINE HCL [Concomitant]
     Active Substance: FLUOXETINE HYDROCHLORIDE
  12. ALPRAZOLAM. [Concomitant]
     Active Substance: ALPRAZOLAM
  13. PROBIOTIC [Concomitant]
     Active Substance: PROBIOTICS NOS
  14. ALEVE [Concomitant]
     Active Substance: NAPROXEN SODIUM
  15. AMOXICILLIN. [Concomitant]
     Active Substance: AMOXICILLIN
  16. MILK OF MAGNESIA [Concomitant]
     Active Substance: MAGNESIUM HYDROXIDE
  17. LISINOPRIL. [Concomitant]
     Active Substance: LISINOPRIL
  18. SIMETHICONE (DIMETHICONE) [Concomitant]
     Active Substance: DIMETHICONE
  19. XYREM [Suspect]
     Active Substance: SODIUM OXYBATE
     Indication: NARCOLEPSY
     Dosage: 2.25 G, BID
     Route: 048
     Dates: start: 201506, end: 201506

REACTIONS (1)
  - Disorientation [Unknown]
